FAERS Safety Report 12677917 (Version 1)
Quarter: 2016Q3

REPORT INFORMATION
  Report Type: Spontaneous
  Country: US (occurrence: US)
  Receive Date: 20160823
  Receipt Date: 20160823
  Transmission Date: 20161109
  Serious: No
  Sender: FDA-Public Use
  Company Number: US-TARO-2015TAR00707

PATIENT
  Age: 72 Year
  Sex: Male
  Weight: 83.9 kg

DRUGS (4)
  1. WARFARIN SODIUM TABLETS USP 2MG [Suspect]
     Active Substance: WARFARIN SODIUM
     Indication: ARTERIAL OCCLUSIVE DISEASE
     Dosage: 4 MG, 1X/DAY
     Route: 048
     Dates: start: 201501
  2. WARFARIN SODIUM TABLETS USP 2MG [Suspect]
     Active Substance: WARFARIN SODIUM
     Indication: PERIPHERAL ARTERIAL OCCLUSIVE DISEASE
     Dosage: 5 MG, 1X/DAY
     Route: 048
     Dates: start: 200804, end: 200810
  3. WARFARIN SODIUM TABLETS USP 2MG [Suspect]
     Active Substance: WARFARIN SODIUM
     Indication: THROMBOSIS
     Dosage: UNSPECIFIED DOSING
     Route: 048
     Dates: start: 200810, end: 201501
  4. SIMVASTATIN. [Concomitant]
     Active Substance: SIMVASTATIN
     Dosage: 20 MG, 1X/DAY
     Dates: start: 200804

REACTIONS (3)
  - Blood urine present [Recovered/Resolved]
  - International normalised ratio decreased [Not Recovered/Not Resolved]
  - International normalised ratio increased [Not Recovered/Not Resolved]

NARRATIVE: CASE EVENT DATE: 201503
